FAERS Safety Report 25410580 (Version 5)
Quarter: 2025Q3

REPORT INFORMATION
  Report Type: Report from Study
  Country: EU (occurrence: EU)
  Receive Date: 20250608
  Receipt Date: 20250717
  Transmission Date: 20251021
  Serious: Yes (Hospitalization)
  Sender: ABBVIE
  Company Number: EU-ABBVIE-6315011

PATIENT
  Age: 61 Year
  Sex: Male

DRUGS (3)
  1. FOSCARBIDOPA\FOSLEVODOPA [Suspect]
     Active Substance: FOSCARBIDOPA\FOSLEVODOPA
     Indication: Parkinson^s disease
     Route: 058
     Dates: start: 20250326
  2. FOSCARBIDOPA\FOSLEVODOPA [Suspect]
     Active Substance: FOSCARBIDOPA\FOSLEVODOPA
     Route: 058
  3. FOSCARBIDOPA\FOSLEVODOPA [Suspect]
     Active Substance: FOSCARBIDOPA\FOSLEVODOPA
     Route: 058

REACTIONS (10)
  - General physical health deterioration [Unknown]
  - Confusional state [Not Recovered/Not Resolved]
  - Device difficult to use [Recovering/Resolving]
  - On and off phenomenon [Not Recovered/Not Resolved]
  - Infection [Recovering/Resolving]
  - Road traffic accident [Unknown]
  - Musculoskeletal stiffness [Recovering/Resolving]
  - Infusion site pain [Not Recovered/Not Resolved]
  - Spleen disorder [Unknown]
  - Freezing phenomenon [Not Recovered/Not Resolved]

NARRATIVE: CASE EVENT DATE: 20250101
